FAERS Safety Report 12609640 (Version 1)
Quarter: 2016Q3

REPORT INFORMATION
  Report Type: Report from Study
  Country: IE (occurrence: IE)
  Receive Date: 20160801
  Receipt Date: 20160801
  Transmission Date: 20161109
  Serious: Yes (Hospitalization)
  Sender: FDA-Public Use
  Company Number: IE-ROCHE-1805300

PATIENT
  Age: 50 Year
  Sex: Female

DRUGS (2)
  1. ERLOTINIB [Suspect]
     Active Substance: ERLOTINIB
     Indication: NON-SMALL CELL LUNG CANCER
     Dosage: DATE OF LAST ADMIN. BEFORE SAE: 26/JUL/2016
     Route: 048
     Dates: start: 20130819
  2. BEVACIZUMAB [Suspect]
     Active Substance: BEVACIZUMAB
     Indication: NON-SMALL CELL LUNG CANCER
     Dosage: CYCLE NUMBER: 44 CYCLE?DATE OF LAST ADMIN. BEFORE SAE: 20/JUN/2016 (DOSE: 825 MG)
     Route: 042
     Dates: start: 20130819

REACTIONS (1)
  - Laryngospasm [Unknown]

NARRATIVE: CASE EVENT DATE: 20160727
